FAERS Safety Report 20897677 (Version 1)
Quarter: 2022Q2

REPORT INFORMATION
  Report Type: Spontaneous
  Country: US (occurrence: US)
  Receive Date: 20220531
  Receipt Date: 20220531
  Transmission Date: 20220720
  Serious: No
  Sender: FDA-Public Use
  Company Number: US-PFIZER INC-202200765356

PATIENT
  Age: 65 Year
  Sex: Female
  Weight: 73.48 kg

DRUGS (1)
  1. PAXLOVID [Suspect]
     Active Substance: NIRMATRELVIR\RITONAVIR
     Indication: COVID-19 treatment
     Dosage: [PF-07321332 300 MG]/[RITONAVIR 100 MG]
     Dates: start: 20220524

REACTIONS (6)
  - Sensory disturbance [Unknown]
  - Headache [Unknown]
  - Abdominal discomfort [Unknown]
  - Incorrect dose administered [Unknown]
  - Intentional product misuse [Unknown]
  - Wrong technique in product usage process [Unknown]
